FAERS Safety Report 9441493 (Version 1)
Quarter: 2013Q3

REPORT INFORMATION
  Report Type: Spontaneous
  Country: US (occurrence: US)
  Receive Date: 20130805
  Receipt Date: 20130805
  Transmission Date: 20140515
  Serious: Yes (Life-Threatening)
  Sender: FDA-Public Use
  Company Number: US-009507513-1205USA00081

PATIENT
  Age: 60 Year
  Sex: Female
  Weight: 90.72 kg

DRUGS (2)
  1. JANUMET [Suspect]
     Indication: DIABETES MELLITUS
     Dosage: 1 PILL A DAY 1/2 DOSE A DAY FOR 2 WEEKS
     Route: 048
  2. JANUMET [Suspect]
     Dosage: 1 DF, QD
     Route: 048

REACTIONS (6)
  - Gait disturbance [Recovered/Resolved]
  - Oxygen saturation decreased [Recovered/Resolved]
  - Fatigue [Recovered/Resolved]
  - Diarrhoea [Recovered/Resolved]
  - Wheezing [Recovered/Resolved]
  - Somnolence [Recovered/Resolved]
